FAERS Safety Report 9934499 (Version 7)
Quarter: 2015Q1

REPORT INFORMATION
  Report Type: Report from Study
  Country: US (occurrence: US)
  Receive Date: 20140228
  Receipt Date: 20150306
  Transmission Date: 20150721
  Serious: Yes (Other)
  Sender: FDA-Public Use
  Company Number: US-SA-2013SA114208

PATIENT
  Age: 53 Year
  Sex: Female

DRUGS (3)
  1. GABAPENTIN. [Concomitant]
     Active Substance: GABAPENTIN
  2. AUBAGIO [Suspect]
     Active Substance: TERIFLUNOMIDE
     Indication: MULTIPLE SCLEROSIS
     Route: 048
     Dates: start: 201405
  3. AUBAGIO [Suspect]
     Active Substance: TERIFLUNOMIDE
     Indication: MULTIPLE SCLEROSIS
     Route: 048
     Dates: start: 20131010, end: 201405

REACTIONS (16)
  - Hypoaesthesia [Unknown]
  - Pneumonia [Unknown]
  - Diarrhoea [Recovering/Resolving]
  - Paraesthesia [Unknown]
  - Feeling abnormal [Unknown]
  - Vomiting [Recovering/Resolving]
  - Haematemesis [Unknown]
  - Confusional state [Unknown]
  - Flushing [Unknown]
  - Erythema [Unknown]
  - Condition aggravated [Unknown]
  - Pharyngitis streptococcal [Unknown]
  - Diarrhoea [Unknown]
  - Pruritus [Not Recovered/Not Resolved]
  - Thinking abnormal [Unknown]
  - Burning sensation [Unknown]

NARRATIVE: CASE EVENT DATE: 20140215
